FAERS Safety Report 20152772 (Version 1)
Quarter: 2021Q4

REPORT INFORMATION
  Report Type: Spontaneous
  Country: US (occurrence: None)
  Receive Date: 20211206
  Receipt Date: 20211206
  Transmission Date: 20220304
  Serious: Yes (Disabling, Other)
  Sender: FDA-Public Use
  Company Number: None

PATIENT
  Age: 54 Year
  Sex: Male
  Weight: 67.5 kg

DRUGS (1)
  1. TRIAMCINOLONE ACETONIDE [Suspect]
     Active Substance: TRIAMCINOLONE ACETONIDE
     Indication: Eczema
     Dosage: FREQUENCY : TWICE A DAY;?
     Route: 061
     Dates: start: 20200924, end: 20211001

REACTIONS (2)
  - Drug ineffective [None]
  - Topical steroid withdrawal reaction [None]

NARRATIVE: CASE EVENT DATE: 20211201
